FAERS Safety Report 6667841-1 (Version None)
Quarter: 2010Q2

REPORT INFORMATION
  Report Type: 
  Country: None (occurrence: None)
  Receive Date: 20100405
  Receipt Date: 20100323
  Transmission Date: 20101027
  Serious: Yes (Other)
  Sender: FDA-Public Use
  Company Number: US-PFIZER INC-2010037977

PATIENT
  Sex: Male
  Weight: 80 kg

DRUGS (2)
  1. CHANTIX [Suspect]
     Indication: SMOKING CESSATION THERAPY
     Dosage: UNK
     Route: 048
  2. PALIPERIDONE [Concomitant]
     Dosage: UNK

REACTIONS (2)
  - AGITATION [None]
  - ANGER [None]
